FAERS Safety Report 4842602-4 (Version None)
Quarter: 2005Q4

REPORT INFORMATION
  Report Type: 
  Country: None (occurrence: None)
  Receive Date: 20051201
  Receipt Date: 20050920
  Transmission Date: 20060501
  Serious: Yes (Other)
  Sender: FDA-Public Use
  Company Number: GB-GLAXOSMITHKLINE-B0394469A

PATIENT
  Age: 84 Year
  Sex: Female

DRUGS (5)
  1. REQUIP [Suspect]
     Indication: PARKINSON'S DISEASE
     Dosage: 2MG THREE TIMES PER DAY
     Route: 048
     Dates: start: 20050501
  2. LEVODOPA [Concomitant]
  3. ENTACAPONE [Concomitant]
     Dosage: 200MG FOUR TIMES PER DAY
  4. CO-BENELDOPA [Concomitant]
  5. ROPINIROLE [Concomitant]
     Dosage: 2MG THREE TIMES PER DAY

REACTIONS (1)
  - HALLUCINATION [None]
